FAERS Safety Report 5092993-7 (Version None)
Quarter: 2006Q3

REPORT INFORMATION
  Report Type: 
  Country: None (occurrence: None)
  Receive Date: 20060830
  Receipt Date: 20060822
  Transmission Date: 20061208
  Serious: Yes (Other)
  Sender: FDA-Public Use
  Company Number: VN-GLAXOSMITHKLINE-B0435739A

PATIENT
  Age: 30 Year
  Sex: Male

DRUGS (9)
  1. BLINDED TRIAL MEDICATION [Suspect]
     Indication: HIV INFECTION
     Route: 048
  2. COMBIVIR [Suspect]
     Indication: HIV INFECTION
     Dosage: 1TAB TWICE PER DAY
     Route: 048
  3. EFAVIRENZ [Suspect]
     Indication: HIV INFECTION
     Dosage: 600MG PER DAY
     Route: 048
  4. RIFAMPICIN [Suspect]
  5. ISONIAZID [Suspect]
  6. PYRAZINAMIDE [Suspect]
  7. ETHAMBUTOL HYDROCHLORIDE [Suspect]
  8. DEXAMETHASONE [Concomitant]
  9. SILYBEAN [Concomitant]

REACTIONS (1)
  - HEPATITIS [None]
